FAERS Safety Report 8458672-0 (Version None)
Quarter: 2012Q2

REPORT INFORMATION
  Report Type: 
  Country: None (occurrence: None)
  Receive Date: 20120622
  Receipt Date: 20120614
  Transmission Date: 20120825
  Serious: Yes (Other)
  Sender: FDA-Public Use
  Company Number: BE-JNJFOC-20120609836

PATIENT
  Sex: Female

DRUGS (8)
  1. ZANTAC [Concomitant]
  2. CORDARONE [Concomitant]
  3. XARELTO [Suspect]
     Indication: CEREBROVASCULAR ACCIDENT PROPHYLAXIS
     Route: 048
     Dates: start: 20120123
  4. CRESTOR [Concomitant]
  5. BUMETANIDE [Concomitant]
  6. PLAVIX [Concomitant]
  7. LERCANIDIPINE [Concomitant]
  8. BISOPROLOL [Concomitant]

REACTIONS (1)
  - RENAL IMPAIRMENT [None]
